FAERS Safety Report 7945101-6 (Version None)
Quarter: 2011Q4

REPORT INFORMATION
  Report Type: 
  Country: None (occurrence: None)
  Receive Date: 20111129
  Receipt Date: 20111129
  Transmission Date: 20120403
  Serious: Yes (Other)
  Sender: FDA-Public Use
  Company Number: None

PATIENT
  Sex: Female

DRUGS (1)
  1. GABAPENTIN [Suspect]
     Dosage: A MONTH'S SUPPLY IN 10 DAYS
     Dates: start: 20090901, end: 20101001

REACTIONS (5)
  - FEELING OF BODY TEMPERATURE CHANGE [None]
  - VISUAL ACUITY REDUCED [None]
  - INCORRECT DOSE ADMINISTERED [None]
  - VISUAL IMPAIRMENT [None]
  - REGURGITATION [None]
